FAERS Safety Report 15768529 (Version 1)
Quarter: 2018Q4

REPORT INFORMATION
  Report Type: Report from Study
  Country: None (occurrence: US)
  Receive Date: 20181227
  Receipt Date: 20181227
  Transmission Date: 20190205
  Serious: Yes (Hospitalization)
  Sender: FDA-Public Use
  Company Number: US-ABBVIE-18K-163-2602176-00

PATIENT
  Age: 64 Year
  Sex: Male

DRUGS (2)
  1. HUMIRA [Suspect]
     Active Substance: ADALIMUMAB
     Indication: RHEUMATOID ARTHRITIS
     Route: 058
     Dates: end: 2017
  2. HUMIRA [Suspect]
     Active Substance: ADALIMUMAB
     Route: 058

REACTIONS (6)
  - Foot operation [Recovered/Resolved]
  - Post procedural infection [Recovered/Resolved]
  - Nephrolithiasis [Recovered/Resolved]
  - Kidney enlargement [Unknown]
  - Cardiac failure congestive [Unknown]
  - Kidney contusion [Unknown]

NARRATIVE: CASE EVENT DATE: 201708
